FAERS Safety Report 8925458 (Version 1)
Quarter: 2012Q4

REPORT INFORMATION
  Report Type: Spontaneous
  Country: US (occurrence: None)
  Receive Date: 20121126
  Receipt Date: 20121126
  Transmission Date: 20130627
  Serious: Yes (Life-Threatening, Hospitalization)
  Sender: FDA-Public Use
  Company Number: None

PATIENT
  Age: 54 Year
  Sex: Male
  Weight: 97 kg

DRUGS (1)
  1. MOXIFLOXACIN [Suspect]
     Dosage: once

REACTIONS (5)
  - Erythema [None]
  - Unresponsive to stimuli [None]
  - Flushing [None]
  - Hypoxia [None]
  - Rash [None]
